FAERS Safety Report 7012866-X (Version None)
Quarter: 2010Q3

REPORT INFORMATION
  Report Type: 
  Country: None (occurrence: None)
  Receive Date: 20100924
  Receipt Date: 20100913
  Transmission Date: 20110219
  Serious: Yes (Death)
  Sender: FDA-Public Use
  Company Number: ZM-B.I. PHARMACEUTICALS,INC./RIDGEFIELD-2009-DE-02050GD

PATIENT
  Age: 27 Year
  Sex: Female
  Weight: 45 kg

DRUGS (10)
  1. NEVIRAPINE [Suspect]
     Indication: HIV INFECTION
     Dosage: 200 MG
  2. NEVIRAPINE [Suspect]
     Dosage: 400 MG
  3. LAMIVUDINE [Suspect]
     Indication: HIV INFECTION
  4. STAVUDINE [Suspect]
     Indication: HIV INFECTION
  5. ISONIAZID [Suspect]
     Indication: TUBERCULOSIS
  6. RIFAMPIN [Suspect]
     Indication: TUBERCULOSIS
  7. PYRAZINAMIDE [Suspect]
     Indication: TUBERCULOSIS
  8. ETHAMBUTOL HYDROCHLORIDE [Suspect]
     Indication: TUBERCULOSIS
  9. COTRIM [Suspect]
     Indication: PROPHYLAXIS
  10. AMOXICILLIN [Concomitant]
     Indication: PRODUCTIVE COUGH

REACTIONS (3)
  - HEPATOTOXICITY [None]
  - JAUNDICE [None]
  - VOMITING [None]
